FAERS Safety Report 8925191 (Version 1)
Quarter: 2012Q4

REPORT INFORMATION
  Report Type: 
  Country: US (occurrence: US)
  Receive Date: 20121126
  Receipt Date: 20121126
  Transmission Date: 20130627
  Serious: Yes (Death)
  Sender: FDA-Public Use
  Company Number: US-ASTELLAS-2012US011329

PATIENT
  Age: 58 Year
  Sex: Male

DRUGS (1)
  1. PROGRAF [Suspect]
     Indication: CHRONIC HEPATITIS C
     Dosage: 2 mg, bid
     Route: 048
     Dates: start: 20020208, end: 20121101

REACTIONS (2)
  - Off label use [Unknown]
  - Death [Fatal]
